FAERS Safety Report 5594562-9 (Version None)
Quarter: 2008Q1

REPORT INFORMATION
  Report Type: 
  Country: None (occurrence: None)
  Receive Date: 20080115
  Receipt Date: 20071123
  Transmission Date: 20080703
  Serious: Yes (Hospitalization)
  Sender: FDA-Public Use
  Company Number: CIP07001360

PATIENT
  Age: 74 Year
  Sex: Female

DRUGS (6)
  1. MACRODANTIN [Suspect]
     Indication: URINARY TRACT INFECTION
     Dosage: 50 MG,2/DAY, ORAL
     Route: 048
     Dates: start: 20070501, end: 20070101
  2. MACRODANTIN [Suspect]
     Indication: URINARY TRACT INFECTION
     Dosage: 100 MG, ORAL
     Route: 048
     Dates: start: 20070702, end: 20070701
  3. NEXIUM [Concomitant]
  4. PREMARIN [Concomitant]
  5. MODURETIC 5-50 [Concomitant]
  6. LANOXIN [Concomitant]

REACTIONS (28)
  - ALOPECIA [None]
  - ANAEMIA [None]
  - ATRIAL FIBRILLATION [None]
  - BLINDNESS UNILATERAL [None]
  - CARDIAC DISORDER [None]
  - COLD SWEAT [None]
  - CONFUSIONAL STATE [None]
  - DEHYDRATION [None]
  - DIARRHOEA [None]
  - DRUG HYPERSENSITIVITY [None]
  - FAECAL INCONTINENCE [None]
  - FEELING COLD [None]
  - GAIT DISTURBANCE [None]
  - HYPERTENSION [None]
  - HYPOAESTHESIA [None]
  - HYPOKALAEMIA [None]
  - INCOHERENT [None]
  - MAGNESIUM DEFICIENCY [None]
  - MYALGIA [None]
  - NAUSEA [None]
  - PAIN [None]
  - PHARYNGOLARYNGEAL PAIN [None]
  - PNEUMONIA [None]
  - SKIN DISCOLOURATION [None]
  - SKIN EXFOLIATION [None]
  - URINARY INCONTINENCE [None]
  - VOMITING [None]
  - WHITE BLOOD CELL COUNT DECREASED [None]
